FAERS Safety Report 4733777-6 (Version None)
Quarter: 2005Q3

REPORT INFORMATION
  Report Type: 
  Country: None (occurrence: None)
  Receive Date: 20050803
  Receipt Date: 20050623
  Transmission Date: 20060218
  Serious: Yes (Other)
  Sender: FDA-Public Use
  Company Number: HQWYE709927JUN05

PATIENT
  Sex: Female

DRUGS (4)
  1. ENBREL [Suspect]
     Indication: RHEUMATOID ARTHRITIS
     Route: 058
     Dates: start: 20020406
  2. BETAMETHASONE [Concomitant]
     Indication: HYPERSENSITIVITY
     Route: 065
  3. CALCITRIOL [Concomitant]
     Route: 065
  4. ALENDRONATE SODIUM [Concomitant]
     Route: 065

REACTIONS (5)
  - BLINDNESS [None]
  - FUNGAL INFECTION [None]
  - HYPERSENSITIVITY [None]
  - RASH [None]
  - WHITE BLOOD CELL COUNT DECREASED [None]
